FAERS Safety Report 17158367 (Version 1)
Quarter: 2019Q4

REPORT INFORMATION
  Report Type: Spontaneous
  Country: SA (occurrence: SA)
  Receive Date: 20191216
  Receipt Date: 20191216
  Transmission Date: 20200122
  Serious: Yes (Congenital Anomaly)
  Sender: FDA-Public Use
  Company Number: SA-BIOGEN-2019BI00816678

PATIENT
  Sex: Female

DRUGS (1)
  1. TYSABRI [Suspect]
     Active Substance: NATALIZUMAB
     Indication: MATERNAL EXPOSURE TIMING UNSPECIFIED
     Route: 064
     Dates: start: 2012

REACTIONS (2)
  - Foetal exposure during pregnancy [Recovered/Resolved]
  - Congenital naevus [Not Recovered/Not Resolved]

NARRATIVE: CASE EVENT DATE: 201911
